FAERS Safety Report 10486622 (Version 2)
Quarter: 2015Q3

REPORT INFORMATION
  Report Type: Spontaneous
  Country: US (occurrence: US)
  Receive Date: 20141001
  Receipt Date: 20150923
  Transmission Date: 20151125
  Serious: No
  Sender: FDA-Public Use
  Company Number: US-KOWA-2014S1000603

PATIENT
  Sex: Female
  Weight: 65 kg

DRUGS (1)
  1. LIVALO [Suspect]
     Active Substance: PITAVASTATIN CALCIUM
     Indication: HYPERLIPIDAEMIA
     Dosage: 4 MG, QD
     Route: 048

REACTIONS (1)
  - Dysgeusia [Recovered/Resolved]
